FAERS Safety Report 17854278 (Version 1)
Quarter: 2020Q2

REPORT INFORMATION
  Report Type: Spontaneous
  Country: PL (occurrence: PL)
  Receive Date: 20200603
  Receipt Date: 20200603
  Transmission Date: 20200714
  Serious: Yes (Hospitalization, Other)
  Sender: FDA-Public Use
  Company Number: PL-ACCORD-183832

PATIENT
  Age: 37 Year
  Sex: Male

DRUGS (5)
  1. ENCORTON [Suspect]
     Active Substance: PREDNISONE
     Indication: IMMUNOSUPPRESSION
     Dosage: 1 X 15 MG
  2. VALGANCICLOVIR/VALGANCICLOVIR HYDROCHLORIDE [Concomitant]
     Active Substance: VALGANCICLOVIR
     Dosage: EVERY SECOND DAY, STRENGTH: 450 MG
  3. MYCOPHENOLIC ACID. [Suspect]
     Active Substance: MYCOPHENOLIC ACID
     Indication: IMMUNOSUPPRESSION
     Dosage: 2 X 1000 MG
  4. TACROLIMUS. [Suspect]
     Active Substance: TACROLIMUS
     Indication: IMMUNOSUPPRESSION
     Dosage: 2 X 3.5 MG
  5. SULFAMETHOXAZOLE/TRIMETHOPRIM [Concomitant]
     Active Substance: SULFAMETHOXAZOLE\TRIMETHOPRIM
     Dosage: EVERY SECOND DAY

REACTIONS (5)
  - Enterococcal infection [Recovered/Resolved]
  - Klebsiella infection [Recovered/Resolved]
  - Escherichia infection [Recovered/Resolved]
  - Localised infection [Recovered/Resolved]
  - Skin necrosis [Recovered/Resolved]
